FAERS Safety Report 4434898-8 (Version None)
Quarter: 2004Q3

REPORT INFORMATION
  Report Type: 
  Country: None (occurrence: None)
  Receive Date: 20040726
  Receipt Date: 20040513
  Transmission Date: 20050211
  Serious: No
  Sender: FDA-Public Use
  Company Number: USA040567391

PATIENT
  Age: 76 Year
  Sex: Female
  Weight: 67 kg

DRUGS (5)
  1. FORTEO [Suspect]
     Indication: OSTEOPOROSIS
     Dosage: 20 UG/1 DAY
     Dates: start: 20031101
  2. CELEBREX [Concomitant]
  3. LEVOXYL [Concomitant]
  4. ALLEGRA-D [Concomitant]
  5. MULTI-VITAMINS [Concomitant]

REACTIONS (3)
  - INJECTION SITE ERYTHEMA [None]
  - RASH [None]
  - URTICARIA [None]
